FAERS Safety Report 9147616 (Version 1)
Quarter: 2013Q1

REPORT INFORMATION
  Report Type: Spontaneous
  Country: US (occurrence: US)
  Receive Date: 20130307
  Receipt Date: 20130307
  Transmission Date: 20140127
  Serious: Yes (Other)
  Sender: FDA-Public Use
  Company Number: US-BAXTER-2013BAX007999

PATIENT
  Age: 66 Year
  Sex: Male

DRUGS (5)
  1. DIANEAL LOW CALCIUM [Suspect]
     Indication: PERITONEAL DIALYSIS
     Route: 033
     Dates: start: 20100521, end: 20130121
  2. DIANEAL LOW CALCIUM [Suspect]
     Indication: PERITONEAL DIALYSIS
     Route: 033
     Dates: start: 20100521, end: 20130121
  3. EXTRANEAL [Suspect]
     Indication: PERITONEAL DIALYSIS
     Route: 033
     Dates: start: 20100521, end: 20130121
  4. PREDNISONE [Concomitant]
     Indication: VASCULITIS
  5. AZATHIOPRINE [Concomitant]
     Indication: VASCULITIS

REACTIONS (2)
  - Fungal peritonitis [Unknown]
  - Peritonitis bacterial [Unknown]
